FAERS Safety Report 9976296 (Version 1)
Quarter: 2014Q1

REPORT INFORMATION
  Report Type: Spontaneous
  Country: US (occurrence: US)
  Receive Date: 20140306
  Receipt Date: 20140306
  Transmission Date: 20141002
  Serious: No
  Sender: FDA-Public Use
  Company Number: US-ABBVIE-13P-163-1164635-00

PATIENT
  Age: 69 Year
  Sex: Female
  Weight: 61.29 kg

DRUGS (10)
  1. HUMIRA [Suspect]
     Indication: CROHN^S DISEASE
     Dates: start: 20130620
  2. MEDROL [Concomitant]
     Indication: CROHN^S DISEASE
  3. SYNTHROID [Concomitant]
     Indication: THYROID DISORDER
  4. LISINOPRIL [Concomitant]
     Indication: HYPERTENSION
  5. CARVEDILOL [Concomitant]
     Indication: HYPERTENSION
  6. VIVELLE [Concomitant]
     Indication: HORMONE REPLACEMENT THERAPY
  7. OMEPRAZOLE [Concomitant]
     Indication: GASTROOESOPHAGEAL REFLUX DISEASE
  8. FOLIC ACID [Concomitant]
     Indication: VITAMIN SUPPLEMENTATION
  9. VITAMIN D [Concomitant]
     Indication: VITAMIN SUPPLEMENTATION
  10. LOMOTIL [Concomitant]
     Indication: DIARRHOEA

REACTIONS (4)
  - Fall [Recovered/Resolved]
  - Muscular weakness [Not Recovered/Not Resolved]
  - Muscular weakness [Not Recovered/Not Resolved]
  - Diarrhoea [Not Recovered/Not Resolved]
